FAERS Safety Report 8179746-8 (Version None)
Quarter: 2012Q1

REPORT INFORMATION
  Report Type: 
  Country: None (occurrence: None)
  Receive Date: 20120302
  Receipt Date: 20120222
  Transmission Date: 20120608
  Serious: Yes (Other)
  Sender: FDA-Public Use
  Company Number: US-BAYER-2012-019453

PATIENT
  Age: 46 Year
  Sex: Female

DRUGS (2)
  1. YAZ [Suspect]
     Dosage: UNK
     Route: 048
     Dates: start: 20100201, end: 20100401
  2. YASMIN [Suspect]
     Dosage: UNK
     Route: 048
     Dates: start: 20100201, end: 20100401

REACTIONS (3)
  - EMOTIONAL DISTRESS [None]
  - CEREBROVASCULAR ACCIDENT [None]
  - PAIN [None]
